FAERS Safety Report 8953318 (Version 2)
Quarter: 2012Q4

REPORT INFORMATION
  Report Type: Report from Study
  Country: CA (occurrence: CA)
  Receive Date: 20121206
  Receipt Date: 20121228
  Transmission Date: 20130627
  Serious: Yes (Hospitalization)
  Sender: FDA-Public Use
  Company Number: CA-JNJFOC-20121113398

PATIENT
  Age: 68 Year
  Sex: Female
  Weight: 60.9 kg

DRUGS (7)
  1. REMICADE [Suspect]
     Indication: COLITIS ULCERATIVE
     Route: 042
  2. REMICADE [Suspect]
     Indication: COLITIS ULCERATIVE
     Route: 042
     Dates: start: 20110106
  3. LIPITOR [Concomitant]
     Route: 065
  4. PREVACID [Concomitant]
     Route: 065
  5. PREDNISONE [Concomitant]
     Route: 048
  6. WARFARIN [Concomitant]
     Route: 065
  7. TYLENOL 3 [Concomitant]
     Route: 065

REACTIONS (1)
  - Knee arthroplasty [Recovering/Resolving]
